FAERS Safety Report 9072477 (Version 1)
Quarter: 2013Q1

REPORT INFORMATION
  Report Type: Report from Study
  Country: US (occurrence: US)
  Receive Date: 20130129
  Receipt Date: 20130129
  Transmission Date: 20140127
  Serious: No
  Sender: FDA-Public Use
  Company Number: US-ABBOTT-12P-163-0938206-00

PATIENT
  Age: 60 Year
  Sex: Male

DRUGS (6)
  1. HUMIRA 40 MG/0.8 ML PEN [Suspect]
     Indication: PSORIASIS
     Dosage: LOADING DOSE
     Dates: start: 20120510, end: 20120510
  2. HUMIRA 40 MG/0.8 ML PEN [Suspect]
     Dates: start: 20120517
  3. BENADRYL [Concomitant]
     Indication: PRURITUS
  4. NIVEA [Concomitant]
     Indication: SKIN DISORDER
  5. HALOBETASOL PROPIONATE [Concomitant]
     Indication: PRODUCT USED FOR UNKNOWN INDICATION
     Dosage: 0.05% WITH THE NIVEA CREAM
  6. CLOBEX [Concomitant]
     Indication: PRODUCT USED FOR UNKNOWN INDICATION

REACTIONS (3)
  - Burning sensation [Unknown]
  - Rash generalised [Not Recovered/Not Resolved]
  - Chest discomfort [Unknown]
